FAERS Safety Report 7262641-6 (Version None)
Quarter: 2011Q1

REPORT INFORMATION
  Report Type: 
  Country: None (occurrence: None)
  Receive Date: 20110130
  Receipt Date: 20100922
  Transmission Date: 20110831
  Serious: No
  Sender: FDA-Public Use
  Company Number: US-ABBOTT-10P-163-0673506-00

PATIENT
  Sex: Female
  Weight: 43.13 kg

DRUGS (2)
  1. XANAX [Concomitant]
     Indication: ANXIETY
  2. HUMIRA [Suspect]
     Indication: CROHN'S DISEASE
     Dates: start: 20090201

REACTIONS (9)
  - DRUG INTOLERANCE [None]
  - FREQUENT BOWEL MOVEMENTS [None]
  - POOR QUALITY SLEEP [None]
  - ABDOMINAL PAIN [None]
  - NIGHTMARE [None]
  - APHAGIA [None]
  - NIGHT SWEATS [None]
  - PYREXIA [None]
  - WEIGHT DECREASED [None]
